FAERS Safety Report 4303770-6 (Version None)
Quarter: 2004Q1

REPORT INFORMATION
  Report Type: 
  Country: None (occurrence: None)
  Receive Date: 20040223
  Receipt Date: 20040211
  Transmission Date: 20041129
  Serious: Yes (Death, Hospitalization)
  Sender: FDA-Public Use
  Company Number: WAES 0402USA00915

PATIENT
  Age: 56 Year
  Sex: Male

DRUGS (10)
  1. DECADRON [Suspect]
     Indication: MULTIPLE MYELOMA
     Dosage: 40 MG/DAILY/PO
     Route: 048
     Dates: start: 20020605, end: 20020625
  2. ADRIAMYCIN PFS [Suspect]
     Indication: MULTIPLE MYELOMA
     Dosage: 9 MG/M[2]/DAILY/IV
     Route: 042
     Dates: start: 20020606, end: 20020609
  3. ONCOVIN [Suspect]
     Indication: MULTIPLE MYELOMA
     Dosage: 0.4 MG/DAILY/IV
     Route: 042
     Dates: start: 20020606
  4. DOXIL [Suspect]
     Indication: MULTIPLE MYELOMA
  5. AXID [Concomitant]
  6. COMPAZINE [Concomitant]
  7. LASIX [Concomitant]
  8. RESTORIL [Concomitant]
  9. XANAX [Concomitant]
  10. POTASSIUM CHLORIDE [Concomitant]

REACTIONS (28)
  - ALANINE AMINOTRANSFERASE INCREASED [None]
  - ASCITES [None]
  - ASPARTATE AMINOTRANSFERASE INCREASED [None]
  - CARDIOMYOPATHY [None]
  - COAGULOPATHY [None]
  - EJECTION FRACTION DECREASED [None]
  - ESCHERICHIA BACTERAEMIA [None]
  - FEBRILE NEUTROPENIA [None]
  - FLUID OVERLOAD [None]
  - GENERAL PHYSICAL HEALTH DETERIORATION [None]
  - GENERALISED OEDEMA [None]
  - HAEMATOCRIT DECREASED [None]
  - HAEMOGLOBIN DECREASED [None]
  - HAEMORRHAGE [None]
  - HEPATIC CONGESTION [None]
  - LUNG INFILTRATION [None]
  - MULTI-ORGAN FAILURE [None]
  - NECROSIS [None]
  - PCO2 DECREASED [None]
  - PLATELET COUNT DECREASED [None]
  - PLEURAL EFFUSION [None]
  - RED BLOOD CELL COUNT DECREASED [None]
  - RENAL FAILURE [None]
  - SCROTAL DISORDER [None]
  - SEPSIS [None]
  - SHOCK [None]
  - WHITE BLOOD CELL COUNT DECREASED [None]
  - WHITE BLOOD CELL COUNT INCREASED [None]
